FAERS Safety Report 19906890 (Version 5)
Quarter: 2022Q3

REPORT INFORMATION
  Report Type: Report from Study
  Country: AU (occurrence: AU)
  Receive Date: 20210930
  Receipt Date: 20220715
  Transmission Date: 20221027
  Serious: Yes (Other)
  Sender: FDA-Public Use
  Company Number: AU-TAKEDA-2021TUS059934

PATIENT
  Sex: Female

DRUGS (5)
  1. VEDOLIZUMAB [Suspect]
     Active Substance: VEDOLIZUMAB
     Indication: Colitis ulcerative
     Dosage: 300 MILLIGRAM
     Route: 042
  2. VEDOLIZUMAB [Suspect]
     Active Substance: VEDOLIZUMAB
     Dosage: 300 MILLIGRAM, Q4WEEKS
     Route: 065
  3. ETHINYL ESTRADIOL [Concomitant]
     Active Substance: ETHINYL ESTRADIOL
     Dosage: 30 MICROGRAM
  4. LEVONORGESTREL [Concomitant]
     Active Substance: LEVONORGESTREL
     Dosage: 30 MICROGRAM, QD
  5. LEVONORGESTREL [Concomitant]
     Active Substance: LEVONORGESTREL
     Dosage: 150 MICROGRAM, QD

REACTIONS (2)
  - Colitis ulcerative [Unknown]
  - Device kink [Unknown]
